FAERS Safety Report 7983124-1 (Version None)
Quarter: 2011Q4

REPORT INFORMATION
  Report Type: 
  Country: None (occurrence: None)
  Receive Date: 20111215
  Receipt Date: 20111206
  Transmission Date: 20120403
  Serious: Yes (Other)
  Sender: FDA-Public Use
  Company Number: US-JNJFOC-20111203221

PATIENT
  Sex: Female
  Weight: 67.13 kg

DRUGS (7)
  1. TOPIRAMATE [Suspect]
     Indication: CONVULSION
     Route: 048
     Dates: start: 20090120, end: 20110325
  2. KEPPRA [Suspect]
     Indication: CONVULSION
     Route: 048
     Dates: start: 20110326
  3. TOPAMAX [Suspect]
     Route: 048
  4. PRIMIDONE [Concomitant]
     Indication: CONVULSION
     Route: 048
  5. TOPAMAX [Suspect]
     Route: 048
     Dates: end: 20090120
  6. PRIMIDONE [Concomitant]
     Dosage: 11/2 TABLET AT NIGHT TOTALLY 375 MG
     Route: 048
  7. TOPAMAX [Suspect]
     Indication: CONVULSION
     Route: 048
     Dates: start: 20110326

REACTIONS (7)
  - MALAISE [None]
  - CONVULSION [None]
  - DYSPNOEA [None]
  - BURNS THIRD DEGREE [None]
  - PRODUCT QUALITY ISSUE [None]
  - VISUAL IMPAIRMENT [None]
  - FEELING ABNORMAL [None]
